FAERS Safety Report 5906101-0 (Version None)
Quarter: 2008Q4

REPORT INFORMATION
  Report Type: 
  Country: None (occurrence: None)
  Receive Date: 20081002
  Receipt Date: 20080924
  Transmission Date: 20090506
  Serious: Yes (Other)
  Sender: FDA-Public Use
  Company Number: PHHY2008JP22668

PATIENT
  Age: 62 Year
  Sex: Female

DRUGS (3)
  1. ZOMETA [Suspect]
     Route: 042
  2. FEMARA [Suspect]
     Dosage: UNK
     Route: 048
  3. TAXOL [Concomitant]

REACTIONS (1)
  - THROMBOCYTOPENIA [None]
